FAERS Safety Report 22888176 (Version 3)
Quarter: 2024Q2

REPORT INFORMATION
  Report Type: Report from Study
  Country: JP (occurrence: JP)
  Receive Date: 20230831
  Receipt Date: 20240419
  Transmission Date: 20240715
  Serious: Yes (Other)
  Sender: FDA-Public Use
  Company Number: JP-BEH-2023162487

PATIENT
  Age: 15 Year
  Sex: Male
  Weight: 67.1 kg

DRUGS (8)
  1. PRIVIGEN [Suspect]
     Active Substance: HUMAN IMMUNOGLOBULIN G
     Indication: Hypogammaglobulinaemia
     Dosage: 200 ML, SINGLE
     Route: 041
     Dates: start: 20220707, end: 20220707
  2. PRIVIGEN [Suspect]
     Active Substance: HUMAN IMMUNOGLOBULIN G
     Indication: Primary immunodeficiency syndrome
     Dosage: 200 ML, Q3W
     Route: 041
     Dates: start: 20220519, end: 20220609
  3. PRIVIGEN [Suspect]
     Active Substance: HUMAN IMMUNOGLOBULIN G
     Indication: Bruton^s agammaglobulinaemia
     Dosage: 250 ML, SINGLE
     Route: 041
     Dates: start: 20220815, end: 20220815
  4. PRIVIGEN [Suspect]
     Active Substance: HUMAN IMMUNOGLOBULIN G
     Dosage: 250 ML, QMT
     Route: 041
     Dates: start: 20220901, end: 20221027
  5. PRIVIGEN [Suspect]
     Active Substance: HUMAN IMMUNOGLOBULIN G
     Dosage: 300 ML, QMT
     Route: 041
     Dates: start: 20221124, end: 20230213
  6. PRIVIGEN [Suspect]
     Active Substance: HUMAN IMMUNOGLOBULIN G
     Dosage: 300 ML, SINGLE
     Route: 041
     Dates: start: 20230307, end: 20230307
  7. PRIVIGEN [Suspect]
     Active Substance: HUMAN IMMUNOGLOBULIN G
     Dosage: 300 ML, QMT
     Route: 041
     Dates: start: 20230413
  8. HIZENTRA [Suspect]
     Active Substance: HUMAN IMMUNOGLOBULIN G
     Indication: Hypogammaglobulinaemia
     Dosage: 6 GRAM, QW, ROUTE OF ADMINISTRATION: INJECTION
     Route: 065
     Dates: start: 20190725, end: 20220412

REACTIONS (3)
  - Pneumonia [Recovered/Resolved]
  - COVID-19 [Recovered/Resolved]
  - Therapy interrupted [Unknown]

NARRATIVE: CASE EVENT DATE: 20220803
